FAERS Safety Report 6525972-0 (Version None)
Quarter: 2010Q1

REPORT INFORMATION
  Report Type: 
  Country: None (occurrence: None)
  Receive Date: 20100104
  Receipt Date: 20091228
  Transmission Date: 20100710
  Serious: Yes (Other)
  Sender: FDA-Public Use
  Company Number: PHHY2009DK59619

PATIENT

DRUGS (4)
  1. EXELON [Suspect]
     Dosage: 4.6 MG/24H
     Dates: start: 20091221
  2. MAREVAN [Concomitant]
  3. CIPRALEX [Concomitant]
  4. QUETIAPINE [Concomitant]

REACTIONS (1)
  - INTERNATIONAL NORMALISED RATIO INCREASED [None]
